FAERS Safety Report 4615874-9 (Version None)
Quarter: 2005Q1

REPORT INFORMATION
  Report Type: 
  Country: None (occurrence: None)
  Receive Date: 20050321
  Receipt Date: 20050310
  Transmission Date: 20050727
  Serious: Yes (Life-Threatening, Hospitalization)
  Sender: FDA-Public Use
  Company Number: GXKR2005DE00725

PATIENT
  Age: 83 Year
  Sex: Female
  Weight: 82 kg

DRUGS (9)
  1. METFORMIN (NGX) (METFORMIN) [Suspect]
     Indication: DIABETES MELLITUS NON-INSULIN-DEPENDENT
     Dosage: 850 MG, TID, ORAL
     Route: 048
  2. ASPIRIN [Concomitant]
  3. MOLSIDOMINE (MOLSIDOMINE) [Concomitant]
  4. DIGOXIN (DIGITOXIN) [Concomitant]
  5. FUROSEMIDE [Suspect]
  6. XIPAMIDE (XIPAMIDE) [Concomitant]
  7. LISINOPRIL [Concomitant]
  8. GLIMEPIRIDE 9GLIMEPIRIDE) [Concomitant]
  9. L-THYROXINE (LEVOTHYROXINE) [Concomitant]

REACTIONS (13)
  - DIARRHOEA [None]
  - DRUG LEVEL INCREASED [None]
  - DYSARTHRIA [None]
  - GASTROINTESTINAL DISORDER [None]
  - HAEMODIALYSIS [None]
  - HAEMODYNAMIC INSTABILITY [None]
  - HYPOTENSION [None]
  - HYPOTHERMIA [None]
  - HYPOTONIA [None]
  - LACTIC ACIDOSIS [None]
  - MEDICATION ERROR [None]
  - RENAL FAILURE ACUTE [None]
  - TACHYPNOEA [None]
